FAERS Safety Report 13460682 (Version 1)
Quarter: 2017Q2

REPORT INFORMATION
  Report Type: Spontaneous
  Country: BR (occurrence: BR)
  Receive Date: 20170420
  Receipt Date: 20170420
  Transmission Date: 20170830
  Serious: Yes (Hospitalization)
  Sender: FDA-Public Use
  Company Number: BR-ASPEN PHARMA TRADING LIMITED US-AG-2017-002677

PATIENT
  Age: 72 Year
  Sex: Male

DRUGS (1)
  1. LEUKERAN [Suspect]
     Active Substance: CHLORAMBUCIL
     Indication: PRODUCT USED FOR UNKNOWN INDICATION
     Route: 065

REACTIONS (5)
  - Lymphadenopathy [Unknown]
  - Feeling hot [Unknown]
  - Erysipelas [Unknown]
  - Mass [Unknown]
  - Erythema [Unknown]

NARRATIVE: CASE EVENT DATE: 20170401
